FAERS Safety Report 4924529-2 (Version None)
Quarter: 2006Q1

REPORT INFORMATION
  Report Type: 
  Country: None (occurrence: None)
  Receive Date: 20060222
  Receipt Date: 20060209
  Transmission Date: 20060701
  Serious: Yes (Hospitalization)
  Sender: FDA-Public Use
  Company Number: 2005-135815-NL

PATIENT
  Age: 51 Year
  Sex: Male

DRUGS (2)
  1. MIRTAZAPINE [Suspect]
  2. ETHANOL [Concomitant]

REACTIONS (5)
  - DRUG ABUSER [None]
  - HYPOTENSION [None]
  - INTENTIONAL OVERDOSE [None]
  - SOMNOLENCE [None]
  - SUICIDE ATTEMPT [None]
